FAERS Safety Report 4950461-4 (Version None)
Quarter: 2006Q1

REPORT INFORMATION
  Report Type: 
  Country: None (occurrence: None)
  Receive Date: 20060316
  Receipt Date: 20060301
  Transmission Date: 20060701
  Serious: Yes (Hospitalization, Disabling)
  Sender: FDA-Public Use
  Company Number: 34172

PATIENT
  Age: 78 Year
  Sex: Male

DRUGS (6)
  1. MIOSTAT [Suspect]
     Indication: MIOSIS
     Dosage: IO
     Route: 031
  2. ACETYLSALICYLIC ACID SRT [Concomitant]
  3. ATORVASTATIN CALCIUM [Concomitant]
  4. VALSARTAN [Concomitant]
  5. TORSEMIDE [Concomitant]
  6. CARVEDILOL [Concomitant]

REACTIONS (7)
  - CATARACT OPERATION COMPLICATION [None]
  - DRUG EFFECT DECREASED [None]
  - DRUG INEFFECTIVE [None]
  - GLARE [None]
  - HALO VISION [None]
  - MYDRIASIS [None]
  - SYNCOPE [None]
